FAERS Safety Report 5005163-5 (Version None)
Quarter: 2006Q2

REPORT INFORMATION
  Report Type: 
  Country: None (occurrence: None)
  Receive Date: 20060512
  Receipt Date: 20060510
  Transmission Date: 20061013
  Serious: Yes (Life-Threatening)
  Sender: FDA-Public Use
  Company Number: S05-PRT-05742-01

PATIENT
  Age: 47 Year
  Sex: Male
  Weight: 68 kg

DRUGS (6)
  1. ESCITALOPRAM OXALATE [Suspect]
     Dates: end: 20051217
  2. METHADONE HCL [Suspect]
  3. LORAZEPAM [Concomitant]
  4. TRIAZOLAM [Concomitant]
  5. OXAZEPAM [Concomitant]
  6. ZYPREXA [Concomitant]

REACTIONS (5)
  - ATRIAL FIBRILLATION [None]
  - EYELID OEDEMA [None]
  - METABOLIC ACIDOSIS [None]
  - RESPIRATORY DISTRESS [None]
  - SOMNOLENCE [None]
